FAERS Safety Report 17627836 (Version 1)
Quarter: 2020Q2

REPORT INFORMATION
  Report Type: Other
  Country: CA (occurrence: CA)
  Receive Date: 20200405
  Receipt Date: 20200405
  Transmission Date: 20200713
  Serious: Yes (Other)
  Sender: FDA-Public Use
  Company Number: CA-GLENMARK PHARMACEUTICALS-2020GMK047010

PATIENT

DRUGS (2)
  1. GABAPENTIN. [Suspect]
     Active Substance: GABAPENTIN
     Indication: NEURALGIA
     Dosage: 300 MILLIGRAM, TID
     Route: 065
  2. TOPIRAMATE. [Suspect]
     Active Substance: TOPIRAMATE
     Indication: NEURALGIA
     Dosage: 100 MILLIGRAM, QD
     Route: 065

REACTIONS (6)
  - Skin exfoliation [Unknown]
  - Urticaria [Unknown]
  - Off label use [Unknown]
  - Stevens-Johnson syndrome [Unknown]
  - Erythema [Unknown]
  - Product use in unapproved indication [Unknown]
